FAERS Safety Report 11601839 (Version 1)
Quarter: 2015Q4

REPORT INFORMATION
  Report Type: Spontaneous
  Country: US (occurrence: US)
  Receive Date: 20151006
  Receipt Date: 20151006
  Transmission Date: 20160304
  Serious: No
  Sender: FDA-Public Use
  Company Number: US-AMGEN-USASP2015054555

PATIENT
  Sex: Female

DRUGS (1)
  1. PROLIA [Suspect]
     Active Substance: DENOSUMAB
     Indication: PRODUCT USED FOR UNKNOWN INDICATION
     Dosage: UNK
     Route: 065
     Dates: start: 2012

REACTIONS (10)
  - Pruritus [Unknown]
  - Myalgia [Unknown]
  - Hearing impaired [Unknown]
  - Ear pain [Unknown]
  - Eustachian tube obstruction [Unknown]
  - Muscle strain [Unknown]
  - Ear pruritus [Unknown]
  - Throat irritation [Unknown]
  - Cough [Unknown]
  - Rash [Unknown]
